FAERS Safety Report 10059328 (Version 5)
Quarter: 2015Q2

REPORT INFORMATION
  Report Type: Spontaneous
  Country: US (occurrence: US)
  Receive Date: 20140404
  Receipt Date: 20150515
  Transmission Date: 20150821
  Serious: Yes (Hospitalization, Other)
  Sender: FDA-Public Use
  Company Number: US-BAYER-2014-050709

PATIENT
  Age: 44 Year
  Sex: Female
  Weight: 79.82 kg

DRUGS (20)
  1. CLONIDINE. [Concomitant]
     Active Substance: CLONIDINE
     Indication: BLOOD PRESSURE ABNORMAL
     Dosage: UNK
     Dates: start: 2005
  2. HYDROCODONE [Concomitant]
     Active Substance: HYDROCODONE
  3. KETOROLAC [Concomitant]
     Active Substance: KETOROLAC\KETOROLAC TROMETHAMINE
     Indication: PAIN
     Dosage: 1 TABLET EVERY 6 HOURS AS NEEDED
     Dates: start: 20130313
  4. IRON [Concomitant]
     Active Substance: IRON
  5. TOPAMAX [Concomitant]
     Active Substance: TOPIRAMATE
  6. BUTALBITAL [Concomitant]
     Active Substance: BUTALBITAL
  7. ZOFRAN [Concomitant]
     Active Substance: ONDANSETRON HYDROCHLORIDE
     Indication: NAUSEA
     Dosage: EVERY 6 HOURS, AS NEEDED
     Dates: start: 20130825
  8. PERCOCET [Concomitant]
     Active Substance: ACETAMINOPHEN\OXYCODONE HYDROCHLORIDE
  9. MIRENA [Suspect]
     Active Substance: LEVONORGESTREL
     Indication: MENORRHAGIA
  10. AMOXICILLIN. [Concomitant]
     Active Substance: AMOXICILLIN
  11. MIRENA [Suspect]
     Active Substance: LEVONORGESTREL
     Indication: CONTRACEPTION
     Dosage: 20 MCG/24HR, CONT
     Route: 015
     Dates: start: 20101027, end: 20140929
  12. TORADOL [Concomitant]
     Active Substance: KETOROLAC TROMETHAMINE
  13. IBUPROFEN. [Concomitant]
     Active Substance: IBUPROFEN
  14. TRIAMTERENE AND HYDROCHLOROTHIAZIDE [Concomitant]
     Active Substance: HYDROCHLOROTHIAZIDE\TRIAMTERENE
  15. ZOFRAN [Concomitant]
     Active Substance: ONDANSETRON HYDROCHLORIDE
     Indication: VOMITING
  16. MACROBID [Concomitant]
     Active Substance: NITROFURANTOIN\NITROFURANTOIN MONOHYDRATE
     Indication: URINARY TRACT INFECTION
     Dosage: 100 MG, FOR 7 DAYS
  17. FIORICET [Concomitant]
     Active Substance: ACETAMINOPHEN\BUTALBITAL\CAFFEINE
     Indication: PAIN
     Dosage: 1-2 EVERY 4 HOURS AS NEEDED
     Dates: start: 20131021
  18. PRAVASTATIN [Concomitant]
     Active Substance: PRAVASTATIN\PRAVASTATIN SODIUM
  19. MOTRIN [Concomitant]
     Active Substance: IBUPROFEN
     Indication: PYREXIA
     Dosage: AS NEEDED
     Dates: start: 20130605
  20. PROPRANOLOL [Concomitant]
     Active Substance: PROPRANOLOL\PROPRANOLOL HYDROCHLORIDE

REACTIONS (12)
  - Device breakage [None]
  - Device issue [None]
  - Pain [None]
  - Uterine haemorrhage [None]
  - Emotional distress [None]
  - Embedded device [None]
  - Injury [None]
  - Complication of device removal [None]
  - Device difficult to use [None]
  - Anxiety [None]
  - Headache [None]
  - Device dislocation [None]

NARRATIVE: CASE EVENT DATE: 2011
